FAERS Safety Report 5714936-2 (Version None)
Quarter: 2008Q2

REPORT INFORMATION
  Report Type: 
  Country: None (occurrence: None)
  Receive Date: 20080423
  Receipt Date: 20080417
  Transmission Date: 20081010
  Serious: Yes (Other)
  Sender: FDA-Public Use
  Company Number: AU-ASTRAZENECA-2008AP02834

PATIENT
  Age: 21872 Day
  Sex: Male

DRUGS (7)
  1. NEXIUM [Suspect]
     Route: 042
     Dates: start: 20070524, end: 20070524
  2. ATENOLOL [Concomitant]
     Route: 048
  3. METRONIDAZOLE HCL [Concomitant]
  4. AMPICILLIN [Concomitant]
  5. HEPARIN SODIUM [Concomitant]
  6. MIRTAZAPINE [Concomitant]
  7. PARACETAMOL [Concomitant]

REACTIONS (4)
  - BLEPHARITIS [None]
  - DYSPNOEA [None]
  - PRURITUS [None]
  - WHEEZING [None]
